FAERS Safety Report 5257199-7 (Version None)
Quarter: 2007Q1

REPORT INFORMATION
  Report Type: 
  Country: None (occurrence: None)
  Receive Date: 20070302
  Receipt Date: 20070222
  Transmission Date: 20070707
  Serious: Yes (Other)
  Sender: FDA-Public Use
  Company Number: 2007SP000539

PATIENT
  Age: 70 Year
  Sex: Female
  Weight: 70 kg

DRUGS (9)
  1. NOXAFIL [Suspect]
     Indication: MUCORMYCOSIS
     Dosage: 400 MG; BID; PO
     Route: 048
     Dates: start: 20061117, end: 20070102
  2. NOXAFIL [Suspect]
     Indication: MUCORMYCOSIS
     Dosage: 400 MG; BID; PO
     Route: 048
     Dates: start: 20070122
  3. CYCLOPHOSPHAMIDE [Suspect]
     Indication: LYMPHOMA
  4. ADRIAMYCINE (DOXORUBICIN) [Suspect]
     Indication: LYMPHOMA
  5. VINCRISTINE [Suspect]
     Indication: LYMPHOMA
  6. MABTHERA [Concomitant]
  7. PREDNISONE [Concomitant]
  8. MOPRAL [Concomitant]
  9. LEVOTHYROXINE SODIUM [Concomitant]

REACTIONS (2)
  - DRUG TOXICITY [None]
  - PANCYTOPENIA [None]
